FAERS Safety Report 6223337-2 (Version None)
Quarter: 2009Q2

REPORT INFORMATION
  Report Type: 
  Country: None (occurrence: None)
  Receive Date: 20090609
  Receipt Date: 20090526
  Transmission Date: 20091009
  Serious: Yes (Hospitalization, Other)
  Sender: FDA-Public Use
  Company Number: TRP_02418_2008

PATIENT
  Age: 64 Year
  Sex: Male

DRUGS (1)
  1. ADVAFERON [Suspect]
     Indication: HEPATITIS C
     Dosage: 9 MILLION IU 3X/WEEK SUBCUTANEOUS
     Route: 058
     Dates: start: 20061001, end: 20070505

REACTIONS (6)
  - CELLULITIS [None]
  - FEELING ABNORMAL [None]
  - INJECTION SITE NECROSIS [None]
  - INJECTION SITE ULCER [None]
  - PAIN IN EXTREMITY [None]
  - RASH [None]
